FAERS Safety Report 15548022 (Version 1)
Quarter: 2018Q4

REPORT INFORMATION
  Report Type: Spontaneous
  Country: CN (occurrence: CN)
  Receive Date: 20181024
  Receipt Date: 20181024
  Transmission Date: 20190205
  Serious: Yes (Hospitalization, Other)
  Sender: FDA-Public Use
  Company Number: CN-ELI_LILLY_AND_COMPANY-CN201810010837

PATIENT
  Age: 56 Year
  Sex: Female

DRUGS (3)
  1. PEMETREXED. [Suspect]
     Active Substance: PEMETREXED
     Indication: LUNG ADENOCARCINOMA
     Dosage: 500 MG/M2, CYCLICAL
     Route: 065
  2. PEMETREXED. [Suspect]
     Active Substance: PEMETREXED
     Dosage: UNK, UNKNOWN
     Route: 065
  3. CARBOPLATIN. [Concomitant]
     Active Substance: CARBOPLATIN
     Indication: LUNG ADENOCARCINOMA
     Dosage: UNK, CYCLICAL
     Route: 065

REACTIONS (2)
  - Off label use [Unknown]
  - Colitis ischaemic [Recovered/Resolved]
